FAERS Safety Report 7634684-1 (Version None)
Quarter: 2011Q3

REPORT INFORMATION
  Report Type: 
  Country: None (occurrence: None)
  Receive Date: 20110725
  Receipt Date: 20100116
  Transmission Date: 20111222
  Serious: Yes (Death, Hospitalization, Other)
  Sender: FDA-Public Use
  Company Number: US-BAYER-201011407NA

PATIENT
  Age: 53 Year
  Sex: Male
  Weight: 111.57 kg

DRUGS (10)
  1. TRASYLOL [Suspect]
     Dosage: 50 ML/HR, INFUSION RATE
     Route: 042
     Dates: start: 19990812, end: 19990812
  2. HEPARIN [Concomitant]
     Dosage: 45000 U, UNK
     Route: 042
     Dates: start: 19990812, end: 19990812
  3. TRASYLOL [Suspect]
     Indication: AORTIC VALVE REPLACEMENT
     Dosage: 1 ML,TEST DOSE
     Route: 042
     Dates: start: 19990812, end: 19990812
  4. PROTAMINE SULFATE [Concomitant]
     Dosage: 550 MG, UNK
     Route: 042
     Dates: start: 19990812, end: 19990812
  5. PROZAC [Concomitant]
     Indication: DEPRESSION
     Dosage: 10 MG, ONCE
     Route: 048
     Dates: start: 19800101, end: 19990101
  6. PROGRAF [Concomitant]
     Indication: PROPHYLAXIS AGAINST TRANSPLANT REJECTION
     Dosage: 5 MG, BID
     Route: 048
     Dates: start: 19970101, end: 19990101
  7. FENTANYL [Concomitant]
     Dosage: 7 ML, UNK
     Route: 042
     Dates: start: 19990812, end: 19990812
  8. ZEMURON [Concomitant]
     Dosage: 240 ML, UNK
     Route: 042
     Dates: start: 19990812, end: 19990812
  9. OMNIPAQUE 140 [Concomitant]
     Indication: ARTERIOGRAM CORONARY
     Dosage: 100 ML, UNK
     Route: 042
     Dates: start: 19990810
  10. CEFAZOLIN [Concomitant]
     Dosage: 1 G, UNK
     Route: 042
     Dates: start: 19990812, end: 19990812

REACTIONS (15)
  - CEREBROVASCULAR ACCIDENT [None]
  - ORGAN FAILURE [None]
  - INJURY [None]
  - DEPRESSION [None]
  - ANHEDONIA [None]
  - ANXIETY [None]
  - FEAR [None]
  - PAIN [None]
  - DEATH [None]
  - CARDIAC DISORDER [None]
  - CARDIAC ARREST [None]
  - RENAL IMPAIRMENT [None]
  - UNEVALUABLE EVENT [None]
  - RENAL INJURY [None]
  - RENAL FAILURE [None]
